FAERS Safety Report 4322871-X (Version None)
Quarter: 2004Q1

REPORT INFORMATION
  Report Type: 
  Country: None (occurrence: None)
  Receive Date: 20040322
  Receipt Date: 20040128
  Transmission Date: 20041129
  Serious: No
  Sender: FDA-Public Use
  Company Number: SU-2004-002093

PATIENT

DRUGS (1)
  1. BENICAR HCT [Suspect]
     Indication: HYPERTENSION

REACTIONS (1)
  - HEADACHE [None]
